FAERS Safety Report 9633899 (Version 1)
Quarter: 2013Q4

REPORT INFORMATION
  Report Type: Spontaneous
  Country: CA (occurrence: CA)
  Receive Date: 20131021
  Receipt Date: 20131021
  Transmission Date: 20140711
  Serious: Yes (Other)
  Sender: FDA-Public Use
  Company Number: CA-JNJFOC-20131003405

PATIENT
  Sex: 0

DRUGS (2)
  1. DARUNAVIR [Suspect]
     Indication: HIV INFECTION
     Route: 065
  2. ETRAVIRINE [Suspect]
     Indication: HIV INFECTION
     Route: 065

REACTIONS (2)
  - Liver function test abnormal [Unknown]
  - Hepatotoxicity [Unknown]
